FAERS Safety Report 10344007 (Version 1)
Quarter: 2014Q3

REPORT INFORMATION
  Report Type: Spontaneous
  Country: US (occurrence: None)
  Receive Date: 20140725
  Receipt Date: 20140725
  Transmission Date: 20150326
  Serious: Yes (Life-Threatening, Disabling)
  Sender: FDA-Public Use
  Company Number: None

PATIENT
  Sex: Female
  Weight: 94.8 kg

DRUGS (1)
  1. PAXIL [Suspect]
     Active Substance: PAROXETINE HYDROCHLORIDE
     Indication: DEPRESSION
     Dosage: 1 EVERY MORNING  MOUTH?STARTED TAKING: APRIL?STOPPED TAKING:JUNE
     Route: 048

REACTIONS (3)
  - Hallucination, visual [None]
  - Intentional self-injury [None]
  - Amnesia [None]
